FAERS Safety Report 25559556 (Version 1)
Quarter: 2025Q3

REPORT INFORMATION
  Report Type: Spontaneous
  Country: US (occurrence: US)
  Receive Date: 20250715
  Receipt Date: 20250715
  Transmission Date: 20251021
  Serious: No
  Sender: NOVO NORDISK
  Company Number: US-NOVOPROD-1418902

PATIENT
  Age: 48 Year
  Sex: Male

DRUGS (1)
  1. OZEMPIC [Suspect]
     Active Substance: SEMAGLUTIDE
     Indication: Weight control
     Route: 058
     Dates: start: 20250131

REACTIONS (7)
  - Illness [Unknown]
  - Cluster headache [Unknown]
  - Heart rate increased [Unknown]
  - Nausea [Unknown]
  - Abdominal pain [Unknown]
  - Fatigue [Unknown]
  - Wrong technique in product usage process [Unknown]
